FAERS Safety Report 8417255-9 (Version None)
Quarter: 2012Q2

REPORT INFORMATION
  Report Type: 
  Country: None (occurrence: None)
  Receive Date: 20120606
  Receipt Date: 20120529
  Transmission Date: 20120825
  Serious: Yes (Hospitalization)
  Sender: FDA-Public Use
  Company Number: DE-PFIZER INC-2012084630

PATIENT
  Age: 63 Year
  Sex: Male
  Weight: 70 kg

DRUGS (5)
  1. VENLAFAXINE HCL [Suspect]
     Indication: MAJOR DEPRESSION
     Dosage: 225 MG PER DAY (150 MG IN THE MORNING, 75 MG AT NOON)
  2. AMLODIPINE [Concomitant]
     Indication: HYPERTENSION
     Dosage: 5 MG, UNK
     Route: 048
  3. MIRTAZAPINE [Concomitant]
     Indication: DEPRESSION
     Dosage: 30 MG, UNK
     Route: 048
  4. VENLAFAXINE HCL [Suspect]
     Dosage: 150 MG, UNK
  5. OLANZAPINE [Concomitant]
     Indication: MAJOR DEPRESSION
     Dosage: 2.5 MG, UNK
     Route: 048

REACTIONS (2)
  - BLOOD TEST ABNORMAL [None]
  - ANTIDEPRESSANT DRUG LEVEL INCREASED [None]
